FAERS Safety Report 4600643-6 (Version None)
Quarter: 2005Q1

REPORT INFORMATION
  Report Type: 
  Country: None (occurrence: None)
  Receive Date: 20050304
  Receipt Date: 20050216
  Transmission Date: 20050727
  Serious: Yes (Other)
  Sender: FDA-Public Use
  Company Number: 2005037923

PATIENT
  Age: 87 Year
  Sex: Male

DRUGS (4)
  1. SULFASALAZINE [Suspect]
     Indication: INFLAMMATORY BOWEL DISEASE
     Dosage: 1000 MG (500 MG, 2 IN 1 D), ORAL
     Route: 048
     Dates: start: 20000906
  2. CAPTOPRIL [Suspect]
     Indication: HYPERTENSION
     Dosage: 50 MG (25 MG, 2 IN 1 D), ORAL
     Route: 048
     Dates: start: 20000106
  3. OXYTETRACYLCLINE (OXYTETRACYCLINE) [Suspect]
     Indication: ROSACEA
     Dosage: 500 MG (250 MG, 2 IN 1 D), ORAL
     Route: 048
     Dates: start: 20000130
  4. HYDRALAZINE HCL [Suspect]
     Indication: HYPERTENSION
     Dosage: 150 MG (150 MG, 3 IN 1 D), ORAL
     Route: 048
     Dates: start: 20030725

REACTIONS (3)
  - GYNAECOMASTIA [None]
  - INFLAMMATORY BOWEL DISEASE [None]
  - ROSACEA [None]
